FAERS Safety Report 14548482 (Version 1)
Quarter: 2018Q1

REPORT INFORMATION
  Report Type: Spontaneous
  Country: US (occurrence: US)
  Receive Date: 20180219
  Receipt Date: 20180219
  Transmission Date: 20180509
  Serious: No
  Sender: FDA-Public Use
  Company Number: US-ROCHE-1887713

PATIENT
  Age: 14 Year
  Sex: Female
  Weight: 72.75 kg

DRUGS (1)
  1. XOLAIR [Suspect]
     Active Substance: OMALIZUMAB
     Indication: ASTHMA
     Dosage: MULTIPLE INJECTIONS IN BOTH ARMS FOR TOTAL 375 MG
     Route: 065
     Dates: start: 20170127

REACTIONS (7)
  - Urticaria [Recovered/Resolved]
  - Nausea [Not Recovered/Not Resolved]
  - Headache [Not Recovered/Not Resolved]
  - Swelling [Unknown]
  - Erythema [Unknown]
  - Asthenia [Unknown]
  - Dizziness [Not Recovered/Not Resolved]

NARRATIVE: CASE EVENT DATE: 20170127
